FAERS Safety Report 16042213 (Version 1)
Quarter: 2019Q1

REPORT INFORMATION
  Report Type: Spontaneous
  Country: US (occurrence: US)
  Receive Date: 20190306
  Receipt Date: 20190306
  Transmission Date: 20190418
  Serious: No
  Sender: FDA-Public Use
  Company Number: US-AKORN PHARMACEUTICALS-2018AKN00281

PATIENT
  Sex: Female
  Weight: 56.69 kg

DRUGS (5)
  1. MYORISAN [Suspect]
     Active Substance: ISOTRETINOIN
     Indication: ACNE
     Dosage: 40 MG, UNK
     Dates: start: 20170517, end: 201706
  2. MYORISAN [Suspect]
     Active Substance: ISOTRETINOIN
     Dosage: 80 MG, UNK
     Dates: start: 201707, end: 201712
  3. MYORISAN [Suspect]
     Active Substance: ISOTRETINOIN
     Dosage: 120 MG, UNK
     Dates: start: 201712, end: 201801
  4. MYORISAN [Suspect]
     Active Substance: ISOTRETINOIN
     Indication: ACNE
     Dosage: UNK
     Dates: start: 20170624
  5. MYORISAN [Suspect]
     Active Substance: ISOTRETINOIN
     Dosage: 60 MG, UNK
     Dates: start: 201706, end: 201707

REACTIONS (4)
  - Acne [Not Recovered/Not Resolved]
  - Dry skin [Recovering/Resolving]
  - Skin fissures [Recovering/Resolving]
  - Cheilitis [Recovering/Resolving]
